FAERS Safety Report 7948449-4 (Version None)
Quarter: 2011Q4

REPORT INFORMATION
  Report Type: 
  Country: None (occurrence: None)
  Receive Date: 20111125
  Receipt Date: 20111116
  Transmission Date: 20120403
  Serious: Yes (Hospitalization, Other)
  Sender: FDA-Public Use
  Company Number: GB-DEXPHARM-20111511

PATIENT
  Age: 73 Year
  Sex: Male

DRUGS (11)
  1. LISINOPRIL [Concomitant]
  2. OMEPRAZOLE [Suspect]
     Indication: OESOPHAGITIS
     Dosage: 40 MG MILLIGRAM(S)
     Dates: start: 20110228, end: 20111004
  3. ASPIRIN [Concomitant]
  4. SENNA [Concomitant]
  5. LACTULOSE [Concomitant]
  6. SIMVASTATIN [Concomitant]
  7. SPIRONOLACTONE [Concomitant]
  8. WARFARIN SODIUM [Concomitant]
  9. DILTIAZEM HCL [Concomitant]
  10. FERROUS FUMARATE [Concomitant]
  11. RANITIDINE [Concomitant]

REACTIONS (2)
  - RENAL FAILURE ACUTE [None]
  - TUBULOINTERSTITIAL NEPHRITIS [None]
